FAERS Safety Report 21373651 (Version 1)
Quarter: 2022Q3

REPORT INFORMATION
  Report Type: Spontaneous
  Country: US (occurrence: US)
  Receive Date: 20220926
  Receipt Date: 20220926
  Transmission Date: 20221027
  Serious: No
  Sender: FDA-Public Use
  Company Number: US-ALKERMES INC.-ALK-2022-004417

PATIENT
  Sex: Female
  Weight: 81.633 kg

DRUGS (1)
  1. VIVITROL [Suspect]
     Active Substance: NALTREXONE
     Indication: Alcoholism
     Dosage: 380 MILLIGRAM, QMO
     Route: 030
     Dates: start: 20220907

REACTIONS (4)
  - Pain [Unknown]
  - Injection site pain [Unknown]
  - Injection site nodule [Unknown]
  - Injection site reaction [Unknown]
